FAERS Safety Report 25365792 (Version 1)
Quarter: 2025Q2

REPORT INFORMATION
  Report Type: Report from Study
  Country: US (occurrence: US)
  Receive Date: 20250528
  Receipt Date: 20250528
  Transmission Date: 20250717
  Serious: Yes (Other)
  Sender: ABBVIE
  Company Number: US-ABBVIE-6293599

PATIENT
  Age: 54 Year
  Sex: Female

DRUGS (1)
  1. RINVOQ [Suspect]
     Active Substance: UPADACITINIB
     Indication: Product used for unknown indication
     Route: 048
     Dates: start: 20210107

REACTIONS (5)
  - Trigeminal neuralgia [Not Recovered/Not Resolved]
  - Gait inability [Recovering/Resolving]
  - Arthralgia [Unknown]
  - Wisdom teeth removal [Unknown]
  - Neuralgia [Unknown]

NARRATIVE: CASE EVENT DATE: 20230101
